FAERS Safety Report 7065159-9 (Version None)
Quarter: 2010Q4

REPORT INFORMATION
  Report Type: 
  Country: None (occurrence: None)
  Receive Date: 20101027
  Receipt Date: 20101018
  Transmission Date: 20110411
  Serious: Yes (Other)
  Sender: FDA-Public Use
  Company Number: GB-JNJFOC-20100906466

PATIENT
  Sex: Female

DRUGS (10)
  1. HALOPERIDOL [Suspect]
     Indication: PSYCHOTIC DISORDER
     Route: 065
  2. HALOPERIDOL [Suspect]
     Route: 065
  3. HALOPERIDOL [Suspect]
     Route: 065
  4. HALOPERIDOL [Suspect]
     Indication: PSYCHOMOTOR HYPERACTIVITY
     Route: 065
  5. HALOPERIDOL [Suspect]
     Route: 065
  6. HALOPERIDOL [Suspect]
     Route: 065
  7. HALOPERIDOL [Suspect]
     Indication: ABNORMAL BEHAVIOUR
     Route: 065
  8. HALOPERIDOL [Suspect]
     Route: 065
  9. HALOPERIDOL [Suspect]
     Route: 065
  10. PHENOTHIAZINE [Suspect]
     Indication: PRODUCT USED FOR UNKNOWN INDICATION
     Route: 065

REACTIONS (6)
  - DROOLING [None]
  - DYSKINESIA [None]
  - DYSTONIA [None]
  - GAIT DISTURBANCE [None]
  - PAROXYSMAL CHOREOATHETOSIS [None]
  - PSYCHOMOTOR HYPERACTIVITY [None]
